FAERS Safety Report 19265869 (Version 1)
Quarter: 2021Q2

REPORT INFORMATION
  Report Type: Report from Study
  Country: None (occurrence: PR)
  Receive Date: 20210517
  Receipt Date: 20210517
  Transmission Date: 20210717
  Serious: Yes (Other)
  Sender: FDA-Public Use
  Company Number: PR-ABBVIE-21K-131-3906528-00

PATIENT
  Age: 41 Year
  Sex: Female
  Weight: 97.61 kg

DRUGS (3)
  1. RINVOQ [Suspect]
     Active Substance: UPADACITINIB
     Indication: RHEUMATOID ARTHRITIS
  2. COVID?19 VACCINE NOS. [Suspect]
     Active Substance: COVID-19 VACCINE NOS
     Indication: COVID-19 IMMUNISATION
     Route: 030
  3. RINVOQ [Suspect]
     Active Substance: UPADACITINIB
     Indication: PSORIATIC ARTHROPATHY
     Route: 048
     Dates: start: 20191101

REACTIONS (3)
  - Asphyxia [Recovered/Resolved]
  - Tracheal obstruction [Recovered/Resolved]
  - Allergy to vaccine [Recovered/Resolved]

NARRATIVE: CASE EVENT DATE: 20210319
